FAERS Safety Report 22159087 (Version 1)
Quarter: 2023Q1

REPORT INFORMATION
  Report Type: Other
  Country: TR (occurrence: None)
  Receive Date: 20230331
  Receipt Date: 20230331
  Transmission Date: 20230417
  Serious: Yes (Death, Hospitalization)
  Sender: FDA-Public Use
  Company Number: TR-ROCHE-3321651

PATIENT
  Age: 57 Year
  Sex: Male

DRUGS (2)
  1. RITUXIMAB [Suspect]
     Active Substance: RITUXIMAB
     Indication: Granulomatosis with polyangiitis
     Route: 042
  2. PREDNISOLONE [Concomitant]
     Active Substance: PREDNISOLONE

REACTIONS (1)
  - COVID-19 [Fatal]
